FAERS Safety Report 7667992-9 (Version None)
Quarter: 2011Q3

REPORT INFORMATION
  Report Type: 
  Country: None (occurrence: None)
  Receive Date: 20110808
  Receipt Date: 20110802
  Transmission Date: 20111222
  Serious: Yes (Death)
  Sender: FDA-Public Use
  Company Number: JP-BRISTOL-MYERS SQUIBB COMPANY-15892086

PATIENT
  Age: 83 Year
  Sex: Male

DRUGS (10)
  1. AVAPRO [Suspect]
     Indication: HYPERTENSION
     Route: 048
     Dates: start: 20100713, end: 20101225
  2. RABEPRAZOLE SODIUM [Concomitant]
     Route: 048
  3. ADALAT [Concomitant]
     Route: 048
     Dates: start: 20060612
  4. LASIX [Concomitant]
  5. CARVEDILOL [Concomitant]
     Route: 048
     Dates: start: 20090223
  6. ASPIRIN [Concomitant]
     Route: 048
  7. ALDOMET [Concomitant]
     Route: 048
     Dates: start: 20050315
  8. CRESTOR [Concomitant]
     Route: 048
  9. LANTUS [Concomitant]
     Dosage: SOLOSTAR INJECTION
     Route: 058
  10. ALLOPURINOL [Concomitant]
     Route: 048

REACTIONS (1)
  - GASTRIC CANCER [None]
